FAERS Safety Report 5092912-3 (Version None)
Quarter: 2006Q3

REPORT INFORMATION
  Report Type: 
  Country: None (occurrence: None)
  Receive Date: 20060726
  Receipt Date: 20010319
  Transmission Date: 20061208
  Serious: Yes (Death)
  Sender: FDA-Public Use
  Company Number: 2011703

PATIENT
  Age: 44 Year
  Sex: Male
  Weight: 79.8 kg

DRUGS (9)
  1. MORPHINE SULFATE [Suspect]
     Indication: DRUG USE FOR UNKNOWN INDICATION
     Dates: start: 20010309, end: 20010309
  2. DIAZEPAM [Suspect]
     Indication: DRUG USE FOR UNKNOWN INDICATION
  3. ALPRAZOLAM [Suspect]
     Indication: DRUG USE FOR UNKNOWN INDICATION
  4. HYDROCODONE BITARTRATE (SIMILAR TO IND 59,175) (HYDROCODONE BITARTRATE [Suspect]
     Indication: DRUG USE FOR UNKNOWN INDICATION
  5. HYDROMORPHONE HCL [Suspect]
     Indication: DRUG USE FOR UNKNOWN INDICATION
  6. OXAZEPAM [Suspect]
     Indication: DRUG USE FOR UNKNOWN INDICATION
  7. TEMAZEPAM [Suspect]
     Indication: DRUG USE FOR UNKNOWN INDICATION
  8. ACETAMINOPHEN [Suspect]
     Indication: DRUG USE FOR UNKNOWN INDICATION
  9. CANNABINIODS [Suspect]
     Indication: DRUG USE FOR UNKNOWN INDICATION

REACTIONS (1)
  - ACCIDENTAL OVERDOSE [None]
